FAERS Safety Report 16573534 (Version 1)
Quarter: 2019Q3

REPORT INFORMATION
  Report Type: Spontaneous
  Country: US (occurrence: US)
  Receive Date: 20190601
  Receipt Date: 20190601
  Transmission Date: 20191004
  Serious: No
  Sender: FDA-Public Use
  Company Number: None

PATIENT
  Age: 62 Year
  Sex: Female

DRUGS (1)
  1. HUMIRA [Suspect]
     Active Substance: ADALIMUMAB
     Indication: PUSTULAR PSORIASIS
     Dosage: ?          OTHER DOSE:40MG/0.8ML;?
     Route: 058
     Dates: start: 20170128, end: 20181201

REACTIONS (3)
  - Breast operation [None]
  - Staphylococcal infection [None]
  - Therapy cessation [None]

NARRATIVE: CASE EVENT DATE: 20181203
